FAERS Safety Report 9667807 (Version 1)
Quarter: 2013Q4

REPORT INFORMATION
  Report Type: Report from Study
  Country: US (occurrence: US)
  Receive Date: 20131104
  Receipt Date: 20131104
  Transmission Date: 20140711
  Serious: Yes (Hospitalization, Other)
  Sender: FDA-Public Use
  Company Number: US-US-EMD SERONO, INC.-7246706

PATIENT
  Age: 61 Year
  Sex: Male

DRUGS (1)
  1. REBIF [Suspect]
     Indication: MULTIPLE SCLEROSIS
     Route: 058
     Dates: start: 20090422

REACTIONS (6)
  - Gastrointestinal disorder [Unknown]
  - Convulsion [Unknown]
  - Urinary tract infection [Unknown]
  - Faecal incontinence [Unknown]
  - Urinary incontinence [Unknown]
  - Gait disturbance [Not Recovered/Not Resolved]
